FAERS Safety Report 20865593 (Version 1)
Quarter: 2022Q2

REPORT INFORMATION
  Report Type: Spontaneous
  Country: GB (occurrence: GB)
  Receive Date: 20220524
  Receipt Date: 20220524
  Transmission Date: 20220721
  Serious: Yes (Other)
  Sender: FDA-Public Use
  Company Number: GB-MHRA-MED-202205100848473810-ZVOKP

PATIENT
  Age: 58 Year
  Sex: Female

DRUGS (1)
  1. BISOPROLOL [Suspect]
     Active Substance: BISOPROLOL
     Indication: Blood pressure measurement
     Dosage: UNK (5MG X 2, ONCE A DAY)
     Route: 065
     Dates: start: 20120101, end: 20220506

REACTIONS (3)
  - Cellulitis [Not Recovered/Not Resolved]
  - Dermatitis [Not Recovered/Not Resolved]
  - Nail pitting [Not Recovered/Not Resolved]

NARRATIVE: CASE EVENT DATE: 20220301
